FAERS Safety Report 8515832-8 (Version None)
Quarter: 2012Q3

REPORT INFORMATION
  Report Type: 
  Country: None (occurrence: None)
  Receive Date: 20120717
  Receipt Date: 20120711
  Transmission Date: 20120928
  Serious: Yes (Hospitalization)
  Sender: FDA-Public Use
  Company Number: NO-PFIZER INC-2012167496

PATIENT
  Age: 66 Year
  Sex: Male

DRUGS (10)
  1. AMLODIPINE [Concomitant]
     Dosage: 5 MG, 1X/DAY
     Route: 048
     Dates: end: 20120101
  2. VENTOLIN [Concomitant]
     Dosage: 0.2 MG, 4X/DAY
     Route: 055
  3. METOPROLOL SUCCINATE [Concomitant]
     Dosage: 50 MG, 1X/DAY
     Route: 048
  4. SINGULAIR [Concomitant]
     Dosage: 10 MG, 1X/DAY
     Route: 048
  5. LIPITOR [Suspect]
     Indication: HYPERCHOLESTEROLAEMIA
     Dosage: 80 MG, 1X/DAY
     Route: 048
     Dates: start: 20120516, end: 20120523
  6. SIMVASTATIN [Concomitant]
     Dosage: UNK
     Dates: end: 20120501
  7. ASPIRIN [Concomitant]
     Dosage: 160 MG, 1X/DAY
     Route: 048
  8. NITROGLYCERIN [Concomitant]
     Dosage: 0.5 MG, AS NEEDED
     Route: 060
  9. LANSOPRAZOLE [Concomitant]
     Dosage: 30 MG, AS NEEDED
     Route: 048
  10. FLUTICASONE PROPIONATE [Concomitant]
     Dosage: 250 UG, UNK
     Route: 055

REACTIONS (7)
  - CONJUNCTIVAL IRRITATION [None]
  - ERYTHEMA [None]
  - RASH GENERALISED [None]
  - GENERAL PHYSICAL HEALTH DETERIORATION [None]
  - PURPURA [None]
  - PYREXIA [None]
  - STOMATITIS [None]
